FAERS Safety Report 7643605-7 (Version None)
Quarter: 2011Q3

REPORT INFORMATION
  Report Type: 
  Country: None (occurrence: None)
  Receive Date: 20110729
  Receipt Date: 20110722
  Transmission Date: 20111222
  Serious: Yes (Hospitalization, Other)
  Sender: FDA-Public Use
  Company Number: US-TEVA-280688USA

PATIENT
  Sex: Male

DRUGS (1)
  1. CLARAVIS [Suspect]
     Indication: ACNE
     Dosage: 60 MILLIGRAM;
     Route: 048
     Dates: end: 20110501

REACTIONS (8)
  - DIZZINESS [None]
  - ACCIDENTAL OVERDOSE [None]
  - DEPRESSED LEVEL OF CONSCIOUSNESS [None]
  - FATIGUE [None]
  - APHASIA [None]
  - HYPERHIDROSIS [None]
  - INCOHERENT [None]
  - ABNORMAL BEHAVIOUR [None]
